FAERS Safety Report 7425681-X (Version None)
Quarter: 2011Q2

REPORT INFORMATION
  Report Type: 
  Country: None (occurrence: None)
  Receive Date: 20110420
  Receipt Date: 20110330
  Transmission Date: 20111010
  Serious: Yes (Death)
  Sender: FDA-Public Use
  Company Number: DE-SANOFI-AVENTIS-2011SA019337

PATIENT
  Age: 71 Year
  Sex: Male
  Weight: 66 kg

DRUGS (20)
  1. OXALIPLATIN [Suspect]
     Route: 041
     Dates: start: 20100531, end: 20100531
  2. FLUOROURACIL [Suspect]
     Indication: GASTRIC CANCER
     Route: 041
     Dates: start: 20100531, end: 20100531
  3. FLUOROURACIL [Suspect]
     Route: 041
     Dates: start: 20101104, end: 20101104
  4. FOLINIC ACID [Suspect]
     Route: 041
     Dates: start: 20101104, end: 20101104
  5. TAXOTERE [Suspect]
     Route: 041
     Dates: start: 20100531, end: 20100531
  6. OXALIPLATIN [Suspect]
     Indication: GASTRIC CANCER
     Route: 041
     Dates: start: 20100531, end: 20100531
  7. OXALIPLATIN [Suspect]
     Route: 041
     Dates: start: 20101104, end: 20101104
  8. FLUOROURACIL [Suspect]
     Route: 041
     Dates: start: 20100531, end: 20100531
  9. CORTICOSTEROIDS [Concomitant]
     Indication: PROPHYLAXIS
  10. TAXOTERE [Suspect]
     Route: 041
     Dates: start: 20101104, end: 20101104
  11. ANTIEMETICS AND ANTINAUSEANTS [Concomitant]
     Indication: PROPHYLAXIS
  12. I.V. SOLUTIONS [Concomitant]
     Indication: PROPHYLAXIS
  13. TAXOTERE [Suspect]
     Indication: GASTRIC CANCER
     Route: 041
     Dates: start: 20100531, end: 20100531
  14. TAXOTERE [Suspect]
     Route: 041
     Dates: start: 20101104, end: 20101104
  15. FOLINIC ACID [Suspect]
     Route: 041
     Dates: start: 20101104, end: 20101104
  16. OXALIPLATIN [Suspect]
     Route: 041
     Dates: start: 20101104, end: 20101104
  17. FLUOROURACIL [Suspect]
     Route: 041
     Dates: start: 20101104, end: 20101104
  18. FOLINIC ACID [Suspect]
     Indication: GASTRIC CANCER
     Route: 041
     Dates: start: 20100531, end: 20100531
  19. FOLINIC ACID [Suspect]
     Route: 041
     Dates: start: 20100531, end: 20100531
  20. ANTIHISTAMINES [Concomitant]
     Indication: PROPHYLAXIS

REACTIONS (7)
  - MULTI-ORGAN FAILURE [None]
  - FATIGUE [None]
  - DYSPNOEA [None]
  - VOMITING [None]
  - SEPSIS [None]
  - NAUSEA [None]
  - DIARRHOEA [None]
